FAERS Safety Report 16658244 (Version 1)
Quarter: 2019Q3

REPORT INFORMATION
  Report Type: Spontaneous
  Country: GB (occurrence: GB)
  Receive Date: 20190801
  Receipt Date: 20190801
  Transmission Date: 20191004
  Serious: Yes (Life-Threatening, Hospitalization, Disabling, Other)
  Sender: FDA-Public Use
  Company Number: None

PATIENT
  Age: 24 Year
  Sex: Female
  Weight: 70 kg

DRUGS (1)
  1. DEPO-PROVERA [Suspect]
     Active Substance: MEDROXYPROGESTERONE ACETATE
     Indication: CONTRACEPTION
     Dates: start: 20190328, end: 20190628

REACTIONS (10)
  - Diarrhoea [None]
  - Dyspareunia [None]
  - Insomnia [None]
  - Impaired quality of life [None]
  - Nausea [None]
  - Renal pain [None]
  - Dizziness [None]
  - Abdominal distension [None]
  - Oedema [None]
  - Stress [None]
